FAERS Safety Report 7139469-0 (Version None)
Quarter: 2010Q4

REPORT INFORMATION
  Report Type: 
  Country: None (occurrence: None)
  Receive Date: 20101206
  Receipt Date: 20101130
  Transmission Date: 20110411
  Serious: Yes (Hospitalization, Other)
  Sender: FDA-Public Use
  Company Number: US-PFIZER INC-2010085207

PATIENT
  Sex: Female

DRUGS (1)
  1. CHANTIX [Suspect]
     Indication: SMOKING CESSATION THERAPY
     Dosage: UNK
     Dates: start: 20071207, end: 20080128

REACTIONS (9)
  - ANXIETY [None]
  - DEPRESSION [None]
  - HOSTILITY [None]
  - LOSS OF CONSCIOUSNESS [None]
  - MANIA [None]
  - MOOD SWINGS [None]
  - OVERDOSE [None]
  - PARANOIA [None]
  - SUICIDE ATTEMPT [None]
